FAERS Safety Report 19792974 (Version 2)
Quarter: 2021Q3

REPORT INFORMATION
  Report Type: Spontaneous
  Country: US (occurrence: US)
  Receive Date: 20210906
  Receipt Date: 20210907
  Transmission Date: 20211014
  Serious: Yes (Other)
  Sender: FDA-Public Use
  Company Number: US-CELGENEUS-USA-20210809616

PATIENT
  Sex: Male
  Weight: 111.68 kg

DRUGS (1)
  1. ONUREG [Suspect]
     Active Substance: AZACITIDINE
     Indication: ACUTE MYELOID LEUKAEMIA
     Dosage: 200 MILLIGRAM
     Route: 048

REACTIONS (3)
  - Acute myeloid leukaemia [Unknown]
  - Myelosuppression [Unknown]
  - Full blood count decreased [Unknown]
